FAERS Safety Report 23214790 (Version 1)
Quarter: 2023Q4

REPORT INFORMATION
  Report Type: Report from Study
  Country: US (occurrence: US)
  Receive Date: 20231121
  Receipt Date: 20231121
  Transmission Date: 20240110
  Serious: Yes (Other)
  Sender: FDA-Public Use
  Company Number: US-ABBVIE-5495905

PATIENT
  Sex: Male

DRUGS (2)
  1. CREON [Suspect]
     Active Substance: PANCRELIPASE AMYLASE\PANCRELIPASE LIPASE\PANCRELIPASE PROTEASE
     Indication: Product used for unknown indication
     Dosage: 4 CAPSULE WITH MEALS AND  3 CAPSULE WITH SNACK ? FORM STRENGTH: 24000 UNIT? START DATE: ONE AND H...
     Route: 048
  2. CREON [Suspect]
     Active Substance: PANCRELIPASE AMYLASE\PANCRELIPASE LIPASE\PANCRELIPASE PROTEASE
     Indication: Product used for unknown indication
     Dosage: START DATE: ONE AND HALF YEARS AGO?FORM STRENGTH: 12000 UNIT?FREQUENCY TEXT: UNKNOWN
     Route: 048

REACTIONS (1)
  - Pancreatic disorder [Unknown]
